FAERS Safety Report 13439742 (Version 3)
Quarter: 2017Q2

REPORT INFORMATION
  Report Type: Spontaneous
  Country: US (occurrence: US)
  Receive Date: 20170413
  Receipt Date: 20170508
  Transmission Date: 20170830
  Serious: Yes (Death, Other)
  Sender: FDA-Public Use
  Company Number: US-PFIZER INC-2017154536

PATIENT
  Sex: Male

DRUGS (1)
  1. CELEBREX [Suspect]
     Active Substance: CELECOXIB
     Dosage: UNK

REACTIONS (10)
  - Myocardial infarction [Unknown]
  - Nodal rhythm [Unknown]
  - Headache [Unknown]
  - Pain [Unknown]
  - Cerebrovascular accident [Fatal]
  - Capillary disorder [Unknown]
  - Vasculitis [Fatal]
  - Hypoxia [Unknown]
  - Heart rate decreased [Unknown]
  - Sinus disorder [Unknown]
